FAERS Safety Report 11840815 (Version 1)
Quarter: 2015Q4

REPORT INFORMATION
  Report Type: Report from Study
  Country: US (occurrence: US)
  Receive Date: 20151216
  Receipt Date: 20151216
  Transmission Date: 20160305
  Serious: Yes (Other)
  Sender: FDA-Public Use
  Company Number: US-ABBVIE-15K-163-1515540-00

PATIENT
  Age: 71 Year
  Sex: Male

DRUGS (1)
  1. HUMIRA [Suspect]
     Active Substance: ADALIMUMAB
     Indication: PRODUCT USED FOR UNKNOWN INDICATION
     Route: 058
     Dates: end: 20131018

REACTIONS (7)
  - Hypersensitivity [Unknown]
  - Gingivitis [Unknown]
  - Drug effect decreased [Unknown]
  - Dermatitis atopic [Unknown]
  - Pain [Unknown]
  - Stomatitis [Unknown]
  - Pruritus allergic [Unknown]
